FAERS Safety Report 7283514-9 (Version None)
Quarter: 2011Q1

REPORT INFORMATION
  Report Type: 
  Country: None (occurrence: None)
  Receive Date: 20110209
  Receipt Date: 20110131
  Transmission Date: 20110831
  Serious: Yes (Life-Threatening, Hospitalization, Other)
  Sender: FDA-Public Use
  Company Number: FR-BRISTOL-MYERS SQUIBB COMPANY-15533573

PATIENT
  Age: 64 Year
  Sex: Male

DRUGS (7)
  1. DIAMICRON [Concomitant]
  2. OMEXEL LP [Concomitant]
  3. PRAXILENE [Concomitant]
  4. PERMIXON [Concomitant]
  5. GLUCOPHAGE [Suspect]
     Indication: TYPE 2 DIABETES MELLITUS
     Route: 048
  6. COVERSYL [Concomitant]
  7. ZOCOR [Concomitant]

REACTIONS (6)
  - RENAL FAILURE CHRONIC [None]
  - VOMITING [None]
  - DEHYDRATION [None]
  - LACTIC ACIDOSIS [None]
  - HYPOGLYCAEMIA [None]
  - CONSTIPATION [None]
